FAERS Safety Report 4833226-3 (Version None)
Quarter: 2005Q4

REPORT INFORMATION
  Report Type: 
  Country: None (occurrence: None)
  Receive Date: 20051117
  Receipt Date: 20050928
  Transmission Date: 20060501
  Serious: Yes (Death)
  Sender: FDA-Public Use
  Company Number: US_0511123895

PATIENT
  Age: 96 Year
  Sex: Female
  Weight: 44 kg

DRUGS (7)
  1. FORTEO [Suspect]
     Indication: OSTEOPOROSIS
     Dosage: 20 UG/1  DAY
  2. CARVEDILOL [Concomitant]
  3. COUMADIN [Concomitant]
  4. LANITOP    (METILDIGOXIN) [Concomitant]
  5. LOSARTAN [Concomitant]
  6. PLAMET (BROMIDE) [Concomitant]
  7. OMEPRAZOLE [Concomitant]

REACTIONS (1)
  - DEATH [None]
